FAERS Safety Report 10176310 (Version 3)
Quarter: 2015Q1

REPORT INFORMATION
  Report Type: Spontaneous
  Country: US (occurrence: None)
  Receive Date: 20140514
  Receipt Date: 20150212
  Transmission Date: 20150720
  Serious: Yes (Other)
  Sender: FDA-Public Use
  Company Number: KAD201405-000495

PATIENT

DRUGS (1)
  1. RIBAVIRIN. [Suspect]
     Active Substance: RIBAVIRIN
     Indication: RESPIRATORY SYNCYTIAL VIRUS INFECTION
     Dosage: TWICE DAILY, ORAL
     Route: 048

REACTIONS (7)
  - Mental status changes [None]
  - Lactic acidosis [None]
  - Respiratory failure [None]
  - Haemolytic anaemia [None]
  - Product use issue [None]
  - Immunodeficiency [None]
  - Pseudomonal sepsis [None]
